FAERS Safety Report 20933263 (Version 2)
Quarter: 2022Q2

REPORT INFORMATION
  Report Type: Spontaneous
  Country: SK (occurrence: SK)
  Receive Date: 20220608
  Receipt Date: 20220622
  Transmission Date: 20220721
  Serious: Yes (Hospitalization, Other)
  Sender: FDA-Public Use
  Company Number: SK-BoehringerIngelheim-2022-BI-175208

PATIENT
  Age: 72 Year
  Sex: Female
  Weight: 74 kg

DRUGS (9)
  1. PRADAXA [Suspect]
     Active Substance: DABIGATRAN ETEXILATE MESYLATE
     Indication: Atrial fibrillation
     Dosage: 1-0-1
     Route: 048
     Dates: end: 20220504
  2. EMPERIN [Concomitant]
     Indication: Product used for unknown indication
     Dosage: 1-0-1
  3. METOPROLOL [Concomitant]
     Active Substance: METOPROLOL
     Indication: Product used for unknown indication
     Dosage: 1/2-0-1/2
  4. VIDONORM [Concomitant]
     Indication: Product used for unknown indication
     Dosage: 8/5 MG 1-0-0
  5. Sorvasta 20 [Concomitant]
     Indication: Product used for unknown indication
     Dosage: 0-0-1
  6. Enelbin [Concomitant]
     Indication: Product used for unknown indication
  7. OMEPRAZOLE [Concomitant]
     Active Substance: OMEPRAZOLE
     Indication: Product used for unknown indication
     Dosage: 1-0-0
  8. PANCRELIPASE [Concomitant]
     Active Substance: PANCRELIPASE
     Indication: Product used for unknown indication
  9. AMLODIPINE BESYLATE [Concomitant]
     Active Substance: AMLODIPINE BESYLATE
     Indication: Product used for unknown indication

REACTIONS (1)
  - Mechanical ileus [Recovered/Resolved]

NARRATIVE: CASE EVENT DATE: 20220505
